FAERS Safety Report 8777203 (Version 2)
Quarter: 2012Q4

REPORT INFORMATION
  Report Type: 
  Country: JP (occurrence: JP)
  Receive Date: 20120911
  Receipt Date: 20121008
  Transmission Date: 20130627
  Serious: Yes (Other)
  Sender: FDA-Public Use
  Company Number: JP-AMGEN-JPNSP2012056239

PATIENT
  Age: 61 Year
  Sex: Male

DRUGS (4)
  1. ARANESP [Suspect]
     Indication: NEPHROGENIC ANAEMIA
     Dosage: 120 mug, q4wk
     Route: 040
     Dates: start: 20101109, end: 20110627
  2. MIRCERA [Suspect]
     Indication: NEPHROGENIC ANAEMIA
     Dosage: UNK
     Route: 042
     Dates: start: 20120723, end: 20120820
  3. NEORAL [Concomitant]
     Dosage: UNK
     Route: 048
  4. NEORAL [Concomitant]
     Dosage: Uncertainty
     Route: 048

REACTIONS (1)
  - Aplasia pure red cell [Unknown]
